FAERS Safety Report 4538476-1 (Version None)
Quarter: 2004Q4

REPORT INFORMATION
  Report Type: 
  Country: None (occurrence: None)
  Receive Date: 20041223
  Receipt Date: 20041223
  Transmission Date: 20050328
  Serious: Yes (Hospitalization)
  Sender: FDA-Public Use
  Company Number: None

PATIENT
  Age: 68 Year
  Sex: Male

DRUGS (2)
  1. ACETAMINOPHEN [Suspect]
     Dosage: 1 QID PRN PAIN
  2. LORTAB [Suspect]
     Dosage: ONE QID PRN PAIN

REACTIONS (6)
  - DELIRIUM [None]
  - DISORIENTATION [None]
  - DRUG TOXICITY [None]
  - FALL [None]
  - MENTAL STATUS CHANGES [None]
  - SPEECH DISORDER [None]
